FAERS Safety Report 22625252 (Version 1)
Quarter: 2023Q2

REPORT INFORMATION
  Report Type: Spontaneous
  Country: GB (occurrence: None)
  Receive Date: 20230621
  Receipt Date: 20230621
  Transmission Date: 20230722
  Serious: Yes (Other)
  Sender: FDA-Public Use
  Company Number: 2023A142656

PATIENT
  Sex: Female

DRUGS (8)
  1. FULVESTRANT [Suspect]
     Active Substance: FULVESTRANT
     Route: 058
  2. TAMOXIFEN [Suspect]
     Active Substance: TAMOXIFEN
     Route: 048
  3. PACLITAXEL [Suspect]
     Active Substance: PACLITAXEL
     Dates: start: 2020
  4. METFORMIN [Concomitant]
     Active Substance: METFORMIN HYDROCHLORIDE
  5. CITALOPRAM [Concomitant]
     Active Substance: CITALOPRAM HYDROBROMIDE
  6. DENOSUMAB [Concomitant]
     Active Substance: DENOSUMAB
  7. CALCIUM/ VITAMIN D [Concomitant]
  8. ALPELISIB [Concomitant]
     Active Substance: ALPELISIB

REACTIONS (1)
  - Malignant neoplasm progression [Unknown]
